FAERS Safety Report 4526825-X (Version None)
Quarter: 2004Q4

REPORT INFORMATION
  Report Type: 
  Country: None (occurrence: None)
  Receive Date: 20041213
  Receipt Date: 20041202
  Transmission Date: 20050328
  Serious: Yes (Other)
  Sender: FDA-Public Use
  Company Number: 2004-05086

PATIENT
  Age: 40 Year
  Sex: Male

DRUGS (6)
  1. FERRICET (WATSON LABORATORIES) (SODIUM FERRIC GLUCONATE) INJECTION, 62 [Suspect]
     Indication: COLITIS ULCERATIVE
     Dosage: INTRAVENOUS
     Route: 042
     Dates: start: 20040819, end: 20041031
  2. FERRICET (WATSON LABORATORIES) (SODIUM FERRIC GLUCONATE) INJECTION, 62 [Suspect]
     Indication: HAEMORRHAGE
     Dosage: INTRAVENOUS
     Route: 042
     Dates: start: 20040819, end: 20041031
  3. BUDENOFALK (BUDESONIDE) [Concomitant]
  4. SALOFALK (AMINOSALICYCLIC ACID) [Concomitant]
  5. LOPHAKOMP-B-12 [Concomitant]
  6. HYDROCORTISONE [Concomitant]

REACTIONS (6)
  - COLITIS ULCERATIVE [None]
  - CONDITION AGGRAVATED [None]
  - FREQUENT BOWEL MOVEMENTS [None]
  - GASTROINTESTINAL HAEMORRHAGE [None]
  - HAEMATOCHEZIA [None]
  - PAIN [None]
